FAERS Safety Report 9719422 (Version 1)
Quarter: 2013Q4

REPORT INFORMATION
  Report Type: Spontaneous
  Country: US (occurrence: US)
  Receive Date: 20131128
  Receipt Date: 20131128
  Transmission Date: 20140711
  Serious: No
  Sender: FDA-Public Use
  Company Number: US-009507513-1311USA010674

PATIENT
  Age: 54 Year
  Sex: Male
  Weight: 91.16 kg

DRUGS (1)
  1. PEGINTRON [Suspect]
     Indication: HEPATITIS C
     Dosage: 150 MICROGRAM, QW; REDIPEN; 150MCG/0.5 ML; (4SYR/PK)
     Route: 058
     Dates: start: 20131008

REACTIONS (4)
  - Pain [Unknown]
  - Influenza like illness [Unknown]
  - Pyrexia [Unknown]
  - Chills [Unknown]
